FAERS Safety Report 4470685-2 (Version None)
Quarter: 2004Q4

REPORT INFORMATION
  Report Type: 
  Country: None (occurrence: None)
  Receive Date: 20041006
  Receipt Date: 20040929
  Transmission Date: 20050328
  Serious: Yes (Life-Threatening, Hospitalization)
  Sender: FDA-Public Use
  Company Number: 2004SE05411

PATIENT
  Age: 56 Year
  Sex: Male
  Weight: 50 kg

DRUGS (5)
  1. BETALOC ZOK ^ASTRA^ [Suspect]
     Indication: MYOCARDIAL ISCHAEMIA
     Dosage: 25 MG QD; PO
     Route: 048
     Dates: start: 20030613, end: 20030921
  2. PULMICORT [Concomitant]
  3. ZAFIRON [Concomitant]
  4. TIALORID [Concomitant]
  5. AMARYL [Concomitant]

REACTIONS (5)
  - DEPRESSED LEVEL OF CONSCIOUSNESS [None]
  - RENAL FAILURE ACUTE [None]
  - RESPIRATORY ACIDOSIS [None]
  - STATUS ASTHMATICUS [None]
  - VIRAL UPPER RESPIRATORY TRACT INFECTION [None]
